FAERS Safety Report 10012040 (Version 2)
Quarter: 2014Q2

REPORT INFORMATION
  Report Type: Spontaneous
  Country: US (occurrence: US)
  Receive Date: 20140314
  Receipt Date: 20140416
  Transmission Date: 20141212
  Serious: Yes (Hospitalization, Other)
  Sender: FDA-Public Use
  Company Number: US-CELGENEUS-163-21880-14030471

PATIENT
  Sex: Male
  Weight: 86.71 kg

DRUGS (19)
  1. AMIODARONE [Concomitant]
     Indication: PRODUCT USED FOR UNKNOWN INDICATION
     Dosage: 200 MILLIGRAM
     Route: 048
  2. TAPAZOLE [Concomitant]
     Indication: PRODUCT USED FOR UNKNOWN INDICATION
     Route: 065
  3. METOPROLOL TARTRATE [Concomitant]
     Indication: PRODUCT USED FOR UNKNOWN INDICATION
     Dosage: 50 MILLIGRAM
     Route: 048
  4. PERCOCET [Concomitant]
     Indication: PRODUCT USED FOR UNKNOWN INDICATION
     Route: 065
  5. SUCRALFATE [Concomitant]
     Indication: PRODUCT USED FOR UNKNOWN INDICATION
     Route: 065
  6. KLOR-CON [Concomitant]
     Indication: PRODUCT USED FOR UNKNOWN INDICATION
     Dosage: 40 MILLIEQUIVALENTS
     Route: 048
  7. KLOR-CON [Concomitant]
     Dosage: 30 MILLIEQUIVALENTS
     Route: 048
  8. VALTREX [Concomitant]
     Indication: PRODUCT USED FOR UNKNOWN INDICATION
     Dosage: 1000 MILLIGRAM
     Route: 048
  9. VALTREX [Concomitant]
     Dosage: 500 MILLIGRAM
     Route: 048
  10. COUMADIN [Concomitant]
     Indication: PRODUCT USED FOR UNKNOWN INDICATION
     Dosage: 2 MILLIGRAM
     Route: 048
  11. METHIMAZOLE [Concomitant]
     Indication: PRODUCT USED FOR UNKNOWN INDICATION
     Route: 048
  12. DECADRON [Concomitant]
     Indication: PLASMA CELL MYELOMA
     Route: 048
  13. ZOFRAN [Concomitant]
     Indication: NAUSEA
     Route: 048
  14. DERMAGRAN [Concomitant]
     Indication: DECUBITUS ULCER
     Route: 065
     Dates: start: 201308
  15. VELCADE [Concomitant]
     Indication: PLASMA CELL MYELOMA
     Route: 065
  16. ZOMETA [Concomitant]
     Indication: PLASMA CELL MYELOMA
     Route: 065
  17. REVLIMID [Suspect]
     Indication: PLASMA CELL MYELOMA
     Dosage: 10 MILLIGRAM
     Route: 048
     Dates: start: 20130319, end: 20130627
  18. REVLIMID [Suspect]
     Dosage: 15 MILLIGRAM
     Route: 048
     Dates: start: 201403
  19. REVLIMID [Suspect]
     Dosage: 20 MILLIGRAM
     Route: 048

REACTIONS (5)
  - Clavicle fracture [Unknown]
  - Fall [Unknown]
  - Pathological fracture [Recovering/Resolving]
  - Drug intolerance [Unknown]
  - Encephalopathy [Recovering/Resolving]
